FAERS Safety Report 9207598 (Version 1)
Quarter: 2013Q2

REPORT INFORMATION
  Report Type: Report from Study
  Country: US (occurrence: US)
  Receive Date: 20130403
  Receipt Date: 20130403
  Transmission Date: 20140414
  Serious: Yes (Hospitalization)
  Sender: FDA-Public Use
  Company Number: US-BAYER-2013-039100

PATIENT
  Age: 67 Year
  Sex: Male

DRUGS (11)
  1. BETASERON [Suspect]
     Indication: RELAPSING-REMITTING MULTIPLE SCLEROSIS
     Dosage: 8 MIU, QOD
     Route: 058
     Dates: start: 19940122
  2. ATENOLOL [Concomitant]
  3. AMPYRA [Concomitant]
  4. SIMVASTATIN [Concomitant]
  5. AMLODIPIN [Concomitant]
  6. LISINOPRIL [Concomitant]
  7. BABY ASPIRIN [Concomitant]
  8. NIASPAN [Concomitant]
  9. WARFARIN [Concomitant]
  10. VITAMIN D [Concomitant]
  11. METHENAMINE [Concomitant]

REACTIONS (3)
  - Cardiac disorder [Not Recovered/Not Resolved]
  - Cardiac disorder [Not Recovered/Not Resolved]
  - Pain [Not Recovered/Not Resolved]
